FAERS Safety Report 4609567-1 (Version None)
Quarter: 2005Q1

REPORT INFORMATION
  Report Type: 
  Country: None (occurrence: None)
  Receive Date: 20050316
  Receipt Date: 20020528
  Transmission Date: 20050727
  Serious: Yes (Hospitalization, Disabling)
  Sender: FDA-Public Use
  Company Number: PHEH2002US05273

PATIENT
  Age: 37 Year
  Sex: Male

DRUGS (2)
  1. HYDROCODONE W/APAP [Concomitant]
  2. LAMISIL [Suspect]
     Indication: NAIL TINEA
     Dosage: 250 MG, QD
     Route: 048
     Dates: start: 20010720, end: 20010810

REACTIONS (20)
  - ABDOMINAL PAIN [None]
  - ANXIETY [None]
  - ARTHRALGIA [None]
  - DENERVATION ATROPHY [None]
  - HYPOAESTHESIA [None]
  - INSOMNIA [None]
  - LEUKOCYTOCLASTIC VASCULITIS [None]
  - LEUKOCYTOSIS [None]
  - MUSCLE SPASMS [None]
  - NON-CONSUMMATION [None]
  - OEDEMA PERIPHERAL [None]
  - PAIN [None]
  - PETECHIAE [None]
  - RASH [None]
  - SCAR [None]
  - SKIN HYPERPIGMENTATION [None]
  - SKIN LESION [None]
  - SKIN NECROSIS [None]
  - SKIN ULCER [None]
  - WOUND DEBRIDEMENT [None]
